FAERS Safety Report 12912877 (Version 1)
Quarter: 2016Q4

REPORT INFORMATION
  Report Type: Spontaneous
  Country: US (occurrence: US)
  Receive Date: 20161104
  Receipt Date: 20161104
  Transmission Date: 20170207
  Serious: Yes (Hospitalization, Other)
  Sender: FDA-Public Use
  Company Number: US-APOPHARMA USA, INC.-2016AP014012

PATIENT
  Age: 4 Year
  Sex: Male

DRUGS (4)
  1. FLUDARABINE [Concomitant]
     Active Substance: FLUDARABINE PHOSPHATE
     Indication: STEM CELL TRANSPLANT
     Dosage: 150 MG/M2, UNKNOWN
     Route: 065
  2. ALKERAN [Suspect]
     Active Substance: MELPHALAN
     Indication: STEM CELL TRANSPLANT
     Dosage: 140 MG/M2, UNK
     Route: 065
  3. ANTITHYMOCYTE IMMUNOGLOBULIN (RABBIT) [Concomitant]
     Active Substance: LAPINE T-LYMPHOCYTE IMMUNE GLOBULIN
     Indication: PROPHYLAXIS AGAINST TRANSPLANT REJECTION
     Dosage: 2.5 MG/KG, OTHER
     Route: 065
  4. THIOTEPA. [Concomitant]
     Active Substance: THIOTEPA
     Indication: STEM CELL TRANSPLANT
     Dosage: 10 MG/KG, UNKNOWN
     Route: 065

REACTIONS (4)
  - Immune reconstitution inflammatory syndrome [Recovered/Resolved]
  - Lymphocytosis [Recovered/Resolved]
  - Haemolytic anaemia [Recovered/Resolved]
  - Hyperpyrexia [Recovered/Resolved]
